FAERS Safety Report 7015537-9 (Version None)
Quarter: 2010Q3

REPORT INFORMATION
  Report Type: 
  Country: None (occurrence: None)
  Receive Date: 20100927
  Receipt Date: 20100916
  Transmission Date: 20110219
  Serious: Yes (Hospitalization)
  Sender: FDA-Public Use
  Company Number: US-JNJFOC-20100906590

PATIENT
  Sex: Female
  Weight: 64.1 kg

DRUGS (6)
  1. REMICADE [Suspect]
     Indication: INFLAMMATORY BOWEL DISEASE
     Route: 042
  2. CALCIUM [Concomitant]
  3. VITAMIN D [Concomitant]
  4. IRON [Concomitant]
  5. TOPAMAX [Concomitant]
  6. 5-ASA [Concomitant]

REACTIONS (1)
  - HEADACHE [None]
